FAERS Safety Report 4477582-7 (Version None)
Quarter: 2004Q4

REPORT INFORMATION
  Report Type: 
  Country: None (occurrence: None)
  Receive Date: 20041018
  Receipt Date: 20040930
  Transmission Date: 20050328
  Serious: Yes (Other)
  Sender: FDA-Public Use
  Company Number: PHNU2004DE03396

PATIENT
  Age: 15 Year
  Sex: Male

DRUGS (1)
  1. RITALIN [Suspect]
     Indication: ATTENTION DEFICIT/HYPERACTIVITY DISORDER
     Dosage: 10 MG/DAY
     Route: 048
     Dates: start: 20040901

REACTIONS (3)
  - AMNESIA [None]
  - CONCUSSION [None]
  - ROAD TRAFFIC ACCIDENT [None]
